FAERS Safety Report 4732651-9 (Version None)
Quarter: 2005Q3

REPORT INFORMATION
  Report Type: 
  Country: None (occurrence: None)
  Receive Date: 20050801
  Receipt Date: 20050719
  Transmission Date: 20060218
  Serious: Yes (Hospitalization, Other)
  Sender: FDA-Public Use
  Company Number: 2005097431

PATIENT
  Sex: Male
  Weight: 89.2 kg

DRUGS (9)
  1. DILANTIN [Suspect]
     Indication: ILL-DEFINED DISORDER
     Dosage: ORAL
     Route: 048
  2. ACETAMINOPHEN (HALOPERIDOL) [Concomitant]
  3. LOPRESSOR [Concomitant]
  4. PROTONIX [Concomitant]
  5. PHENOBARBITAL TAB [Concomitant]
  6. PROMETHAZINE [Concomitant]
  7. DULCOLAX [Concomitant]
  8. CALCIUM CARBONATE  (CALCIUM CARBONATE) [Concomitant]
  9. PROMETHAZINE [Concomitant]

REACTIONS (4)
  - ANTICONVULSANT DRUG LEVEL BELOW THERAPEUTIC [None]
  - ASTHENIA [None]
  - HYPERKALAEMIA [None]
  - TREATMENT NONCOMPLIANCE [None]
